FAERS Safety Report 8011071-8 (Version None)
Quarter: 2011Q4

REPORT INFORMATION
  Report Type: 
  Country: None (occurrence: None)
  Receive Date: 20111228
  Receipt Date: 20111221
  Transmission Date: 20120403
  Serious: Yes (Hospitalization)
  Sender: FDA-Public Use
  Company Number: DE-B.I. PHARMACEUTICALS,INC./RIDGEFIELD-2011-DE-06885DE

PATIENT
  Age: 47 Year
  Sex: Male
  Weight: 60 kg

DRUGS (2)
  1. SPIRIVA [Suspect]
     Indication: INFLUENZA
     Dosage: 18 MCG
     Route: 055
     Dates: start: 20111216
  2. AMOXICILLIN 1000 [Concomitant]

REACTIONS (3)
  - DRY MOUTH [None]
  - SLEEP DISORDER [None]
  - DYSPNOEA [None]
